FAERS Safety Report 11831772 (Version 1)
Quarter: 2015Q4

REPORT INFORMATION
  Report Type: Spontaneous
  Country: FR (occurrence: FR)
  Receive Date: 20151214
  Receipt Date: 20151214
  Transmission Date: 20160305
  Serious: Yes (Other)
  Sender: FDA-Public Use
  Company Number: FR-PFIZER INC-2015437839

PATIENT
  Age: 54 Year
  Sex: Female

DRUGS (4)
  1. CEFPODOXIME PROXETIL. [Suspect]
     Active Substance: CEFPODOXIME PROXETIL
     Dosage: UNK
  2. TUSSIDANE [Concomitant]
     Active Substance: DEXTROMETHORPHAN HYDROBROMIDE
     Dosage: UNK
  3. PREDNISOLONE. [Suspect]
     Active Substance: PREDNISOLONE
     Dosage: UNK
  4. DERINOX /00886201/ [Concomitant]
     Dosage: UNK

REACTIONS (4)
  - Cough [Unknown]
  - Pruritus [Unknown]
  - Oropharyngeal discomfort [Unknown]
  - Respiratory disorder [Unknown]

NARRATIVE: CASE EVENT DATE: 2013
